FAERS Safety Report 13756891 (Version 1)
Quarter: 2017Q3

REPORT INFORMATION
  Report Type: Report from Study
  Country: US (occurrence: US)
  Receive Date: 20170714
  Receipt Date: 20170714
  Transmission Date: 20171127
  Serious: Yes (Congenital Anomaly, Other)
  Sender: FDA-Public Use
  Company Number: US-GILEAD-2017-0282572

PATIENT
  Age: 0 Year
  Sex: Female
  Weight: 2.86 kg

DRUGS (3)
  1. EMTRICITABINE/RILPIVIRINE/TENOFOVIR ALAFENAMIDE [Suspect]
     Active Substance: EMTRICITABINE\RILPIVIRINE HYDROCHLORIDE\TENOFOVIR ALAFENAMIDE FUMARATE
     Indication: HIV INFECTION
     Dosage: 250 MG, QD
     Route: 064
     Dates: start: 20161117
  2. ELVITEGRAVIR/EMTRICITABINE/TENOFOVIR DF/COBICISTAT [Suspect]
     Active Substance: COBICISTAT\ELVITEGRAVIR\EMTRICITABINE\TENOFOVIR
     Indication: HIV INFECTION
     Dosage: 800 MG, QD
     Route: 064
     Dates: end: 20160801
  3. TRIUMEQ [Suspect]
     Active Substance: ABACAVIR SULFATE\DOLUTEGRAVIR SODIUM\LAMIVUDINE
     Indication: HIV INFECTION
     Dosage: 950 MG, QD
     Route: 064
     Dates: start: 20160831, end: 20161116

REACTIONS (7)
  - Ureteric dilatation [Not Recovered/Not Resolved]
  - Double ureter [Not Recovered/Not Resolved]
  - Congenital pseudarthrosis [Not Recovered/Not Resolved]
  - Pelvi-ureteric obstruction [Not Recovered/Not Resolved]
  - Cystic lymphangioma [Not Recovered/Not Resolved]
  - Compartment syndrome [Not Recovered/Not Resolved]
  - Foetal exposure during pregnancy [Recovered/Resolved]

NARRATIVE: CASE EVENT DATE: 20160521
